FAERS Safety Report 6958652-8 (Version None)
Quarter: 2010Q3

REPORT INFORMATION
  Report Type: 
  Country: None (occurrence: None)
  Receive Date: 20100830
  Receipt Date: 20100830
  Transmission Date: 20110219
  Serious: Yes (Disabling)
  Sender: FDA-Public Use
  Company Number: None

PATIENT
  Age: 52 Year
  Sex: Male
  Weight: 77.1115 kg

DRUGS (2)
  1. VANCOMYCIN [Suspect]
     Indication: CHRONIC OBSTRUCTIVE PULMONARY DISEASE
     Dosage: 1GM 1X IV
     Route: 042
     Dates: start: 20100305, end: 20100305
  2. VANCOMYCIN [Suspect]
     Indication: PNEUMONIA
     Dosage: 1GM 1X IV
     Route: 042
     Dates: start: 20100305, end: 20100305

REACTIONS (1)
  - PRURITUS [None]
